FAERS Safety Report 7427642-3 (Version None)
Quarter: 2011Q1

REPORT INFORMATION
  Report Type: 
  Country: None (occurrence: None)
  Receive Date: 20110302
  Receipt Date: 20101112
  Transmission Date: 20110831
  Serious: No
  Sender: FDA-Public Use
  Company Number: 018362

PATIENT
  Sex: Female
  Weight: 50.8 kg

DRUGS (7)
  1. MESALAMINE [Concomitant]
  2. CIMZIA [Suspect]
     Indication: CROHN'S DISEASE
     Dosage: (SUBCUTANEOUS), (400 MG 1X/MONTH SUBCUTANEOUS)
     Route: 058
     Dates: start: 20100714
  3. CIMZIA [Suspect]
     Indication: COLITIS ULCERATIVE
     Dosage: (SUBCUTANEOUS), (400 MG 1X/MONTH SUBCUTANEOUS)
     Route: 058
     Dates: start: 20100714
  4. CIMZIA [Suspect]
     Indication: CROHN'S DISEASE
     Dosage: (SUBCUTANEOUS), (400 MG 1X/MONTH SUBCUTANEOUS)
     Route: 058
     Dates: start: 20100908
  5. CIMZIA [Suspect]
     Indication: COLITIS ULCERATIVE
     Dosage: (SUBCUTANEOUS), (400 MG 1X/MONTH SUBCUTANEOUS)
     Route: 058
     Dates: start: 20100908
  6. CORTICOSTEROIDS [Concomitant]
  7. SYNTHROID [Concomitant]

REACTIONS (2)
  - HAEMATOCHEZIA [None]
  - FREQUENT BOWEL MOVEMENTS [None]
